FAERS Safety Report 9425472 (Version 1)
Quarter: 2013Q3

REPORT INFORMATION
  Report Type: Report from Study
  Country: CZ (occurrence: CZ)
  Receive Date: 20130729
  Receipt Date: 20130729
  Transmission Date: 20140515
  Serious: Yes (Other)
  Sender: FDA-Public Use
  Company Number: CZ-UCBSA-093274

PATIENT
  Age: 54 Year
  Sex: Female

DRUGS (4)
  1. CIMZIA [Suspect]
     Indication: RHEUMATOID ARTHRITIS
     Dates: start: 20121127, end: 20130625
  2. SALAZOPYRIN [Concomitant]
     Dates: start: 20080515
  3. PLAQUENIL [Concomitant]
     Dates: start: 20120925
  4. MEDROL [Concomitant]
     Dates: start: 20120925, end: 20130220

REACTIONS (1)
  - Psoriasis [Not Recovered/Not Resolved]
